FAERS Safety Report 20991550 (Version 1)
Quarter: 2022Q2

REPORT INFORMATION
  Report Type: Spontaneous
  Country: US (occurrence: None)
  Receive Date: 20220621
  Receipt Date: 20220621
  Transmission Date: 20220721
  Serious: No
  Sender: FDA-Public Use
  Company Number: None

PATIENT
  Age: 85 Year
  Sex: Male
  Weight: 95.25 kg

DRUGS (1)
  1. ERLEADA [Suspect]
     Active Substance: APALUTAMIDE
     Indication: Prostate cancer
     Dosage: FREQUENCY : ONCE;?
     Route: 048

REACTIONS (4)
  - Fall [None]
  - Femur fracture [None]
  - Furuncle [None]
  - Condition aggravated [None]

NARRATIVE: CASE EVENT DATE: 20220501
